FAERS Safety Report 25759399 (Version 2)
Quarter: 2025Q3

REPORT INFORMATION
  Report Type: Report from Study
  Country: US (occurrence: US)
  Receive Date: 20250904
  Receipt Date: 20250918
  Transmission Date: 20251020
  Serious: No
  Sender: SUNOVION
  Company Number: US-SUMITOMO PHARMA SWITZERLAND GMBH-2025SPA011029

PATIENT
  Age: 90 Year
  Sex: Male

DRUGS (14)
  1. ORGOVYX [Suspect]
     Active Substance: RELUGOLIX
     Indication: Prostate cancer
     Route: 048
     Dates: start: 20250818, end: 20250818
  2. ORGOVYX [Suspect]
     Active Substance: RELUGOLIX
     Route: 048
  3. AMLODIPINE BESYLATE [Concomitant]
     Active Substance: AMLODIPINE BESYLATE
  4. Brimonidine;Dorzolamide [Concomitant]
     Route: 047
  5. COSOPT [Concomitant]
     Active Substance: DORZOLAMIDE HYDROCHLORIDE\TIMOLOL MALEATE
     Route: 047
  6. FAMOTIDINE [Concomitant]
     Active Substance: FAMOTIDINE
  7. FINASTERIDE [Concomitant]
     Active Substance: FINASTERIDE
  8. FLOMAX [Concomitant]
     Active Substance: TAMSULOSIN HYDROCHLORIDE
  9. LIPITOR [Concomitant]
     Active Substance: ATORVASTATIN CALCIUM
  10. METOPROLOL SUCCINATE [Concomitant]
     Active Substance: METOPROLOL SUCCINATE
  11. ASPIRIN [Concomitant]
     Active Substance: ASPIRIN
  12. XALATAN [Concomitant]
     Active Substance: LATANOPROST
     Route: 047
  13. VITAMIN D3 [Concomitant]
     Active Substance: CHOLECALCIFEROL
  14. VITAMIN B COMPLEX NOS [Concomitant]
     Active Substance: CYANOCOBALAMIN\PYRIDOXINE HYDROCHLORIDE\RIBOFLAVIN\SODIUM PANTOTHENATE\THIAMINE HYDROCHLORIDE\VITAMI

REACTIONS (6)
  - Lip swelling [Unknown]
  - Pruritus [Unknown]
  - Ear pain [Unknown]
  - Abdominal discomfort [Unknown]
  - Constipation [Unknown]
  - Diarrhoea [Unknown]
